FAERS Safety Report 16483247 (Version 6)
Quarter: 2019Q3

REPORT INFORMATION
  Report Type: Spontaneous
  Country: US (occurrence: US)
  Receive Date: 20190627
  Receipt Date: 20190724
  Transmission Date: 20191004
  Serious: Yes (Life-Threatening, Hospitalization, Other)
  Sender: FDA-Public Use
  Company Number: US-PFIZER INC-2019269107

PATIENT
  Age: 35 Year
  Sex: Male
  Weight: 84 kg

DRUGS (3)
  1. SEPTRA [Suspect]
     Active Substance: SULFAMETHOXAZOLE\TRIMETHOPRIM
     Indication: PNEUMONIA
     Dosage: 500 MG, UNK
     Dates: start: 199501
  2. SEPTRA [Suspect]
     Active Substance: SULFAMETHOXAZOLE\TRIMETHOPRIM
     Indication: NASOPHARYNGITIS
     Dosage: UNK, 2X/DAY
     Route: 048
     Dates: start: 19950308, end: 19950314
  3. SEPTRA [Suspect]
     Active Substance: SULFAMETHOXAZOLE\TRIMETHOPRIM
     Indication: BRONCHITIS
     Dosage: 400 MG, 1X/DAY  (ONE BIG PINK BY MOUTH)
     Route: 048
     Dates: start: 1995

REACTIONS (19)
  - Skin discolouration [Not Recovered/Not Resolved]
  - Immunodeficiency [Unknown]
  - Malignant melanoma [Unknown]
  - Burns fourth degree [Not Recovered/Not Resolved]
  - Pneumonia [Recovered/Resolved]
  - Dysuria [Recovered/Resolved]
  - Infection [Not Recovered/Not Resolved]
  - Skin exfoliation [Unknown]
  - Ill-defined disorder [Not Recovered/Not Resolved]
  - Post-traumatic stress disorder [Not Recovered/Not Resolved]
  - Neoplasm malignant [Not Recovered/Not Resolved]
  - Depression [Not Recovered/Not Resolved]
  - Anaemia [Not Recovered/Not Resolved]
  - Dyschezia [Recovered/Resolved]
  - Ocular hyperaemia [Not Recovered/Not Resolved]
  - Eye disorder [Not Recovered/Not Resolved]
  - Drug hypersensitivity [Not Recovered/Not Resolved]
  - Cyst [Not Recovered/Not Resolved]
  - Stevens-Johnson syndrome [Not Recovered/Not Resolved]

NARRATIVE: CASE EVENT DATE: 1995
